FAERS Safety Report 5527515-7 (Version None)
Quarter: 2007Q4

REPORT INFORMATION
  Report Type: 
  Country: None (occurrence: None)
  Receive Date: 20071123
  Receipt Date: 20071113
  Transmission Date: 20080405
  Serious: Yes (Other)
  Sender: FDA-Public Use
  Company Number: 2007335289

PATIENT
  Age: 7 Year
  Sex: Male
  Weight: 22.6799 kg

DRUGS (3)
  1. COOL MINT LISTERINE POCKETMIST (NO ACTIVE INGREDIENT) [Suspect]
     Dosage: ONCE, OPHTHALMIC
     Route: 047
     Dates: start: 20071113, end: 20071113
  2. CLARITIN [Concomitant]
  3. SINGULAIR ^DIECKMANN^ (MONTELUKAST SODIUM) [Concomitant]

REACTIONS (6)
  - ACCIDENTAL EXPOSURE [None]
  - CRYING [None]
  - EYE BURNS [None]
  - INCORRECT ROUTE OF DRUG ADMINISTRATION [None]
  - PAIN [None]
  - SCREAMING [None]
